FAERS Safety Report 7920874-7 (Version None)
Quarter: 2011Q4

REPORT INFORMATION
  Report Type: 
  Country: None (occurrence: None)
  Receive Date: 20111117
  Receipt Date: 20110907
  Transmission Date: 20120403
  Serious: No
  Sender: FDA-Public Use
  Company Number: US-GLAXOSMITHKLINE-A0943912A

PATIENT
  Sex: Male
  Weight: 88.9 kg

DRUGS (8)
  1. ACETAMINOPHEN [Concomitant]
     Route: 065
  2. METFORMIN HCL [Concomitant]
     Route: 065
  3. XANAX [Concomitant]
     Route: 065
  4. VOTRIENT [Suspect]
     Indication: RENAL CANCER
     Dosage: 800MG PER DAY
     Route: 048
     Dates: start: 20110711
  5. CARVEDILOL [Concomitant]
     Route: 065
  6. LISINOPRIL AND HYDROCHLOROTHIAZIDE [Concomitant]
     Route: 065
  7. ONGLYZA [Concomitant]
     Route: 065
  8. TEKTURNA [Concomitant]
     Route: 065

REACTIONS (1)
  - HAIR COLOUR CHANGES [None]
